FAERS Safety Report 20353170 (Version 1)
Quarter: 2022Q1

REPORT INFORMATION
  Report Type: Spontaneous
  Country: CN (occurrence: CN)
  Receive Date: 20220119
  Receipt Date: 20220119
  Transmission Date: 20220423
  Serious: Yes (Hospitalization, Other)
  Sender: FDA-Public Use
  Company Number: CN-009507513-2201CHN002993

PATIENT
  Sex: Male
  Weight: 58 kg

DRUGS (6)
  1. KEYTRUDA [Suspect]
     Active Substance: PEMBROLIZUMAB
     Indication: Lung neoplasm malignant
     Dosage: 200 MG, ONE TIME ONE DAY
     Route: 041
     Dates: start: 20211203, end: 20211203
  2. PACLITAXEL [Concomitant]
     Active Substance: PACLITAXEL
     Indication: Chemotherapy
     Dosage: 30 ML, ONE TIME ONE DAY (DOSE ALSO REPORTED AS 30 ML)
     Route: 041
     Dates: start: 20211203, end: 20211203
  3. PACLITAXEL [Concomitant]
     Active Substance: PACLITAXEL
     Dosage: 210 ML, ONE TIME ONE DAY (DOSE ALSO REPORTED AS 210 ML)
     Route: 041
     Dates: start: 20211203, end: 20211203
  4. DEXTROSE [Concomitant]
     Active Substance: DEXTROSE
     Indication: Medication dilution
     Dosage: 100 ML, ONE TIME ONE DAY
     Route: 041
     Dates: start: 20211203, end: 20211203
  5. DEXTROSE [Concomitant]
     Active Substance: DEXTROSE
     Dosage: 500 ML, ONE TIME ONE DAY
     Route: 041
     Dates: start: 20211203, end: 20211203
  6. SODIUM CHLORIDE [Concomitant]
     Active Substance: SODIUM CHLORIDE
     Indication: Medication dilution
     Dosage: 100 MILLILITER, ONCE
     Route: 041
     Dates: start: 20211203, end: 20211203

REACTIONS (4)
  - Traumatic lung injury [Recovering/Resolving]
  - Immune-mediated lung disease [Recovering/Resolving]
  - Pneumonia [Recovering/Resolving]
  - Pleural effusion [Recovered/Resolved]

NARRATIVE: CASE EVENT DATE: 20210101
